FAERS Safety Report 16474615 (Version 4)
Quarter: 2019Q3

REPORT INFORMATION
  Report Type: Report from Study
  Country: DE (occurrence: DE)
  Receive Date: 20190625
  Receipt Date: 20190812
  Transmission Date: 20191004
  Serious: Yes (Death, Life-Threatening, Hospitalization, Other)
  Sender: FDA-Public Use
  Company Number: DE-ACTELION-A-CH2018-170017

PATIENT
  Age: 53 Year
  Sex: Female
  Weight: 94 kg

DRUGS (24)
  1. METOPROLOL. [Concomitant]
     Active Substance: METOPROLOL
     Indication: HYPERTENSION
     Dosage: 23.75 MG, BID
     Route: 048
     Dates: start: 20170920
  2. EISEN(II)-GLYCIN-SULFAT-KOMPLEX [Concomitant]
     Active Substance: FERROUS GLYCINE SULFATE
     Indication: IRON DEFICIENCY
     Dosage: UNK
     Route: 048
     Dates: start: 20180306, end: 20180606
  3. TRACLEER [Suspect]
     Active Substance: BOSENTAN
     Indication: PULMONARY ARTERIAL HYPERTENSION
     Dosage: 250 MG, QD
     Route: 048
     Dates: start: 20170312
  4. ABASAGLAR [Concomitant]
     Active Substance: INSULIN GLARGINE
     Indication: TYPE 2 DIABETES MELLITUS
     Dosage: 50 IU, QD
     Route: 058
     Dates: start: 20140101
  5. XIPAMIDE [Concomitant]
     Active Substance: XIPAMIDE
     Indication: CARDIAC FAILURE
     Dosage: UNK
     Route: 048
     Dates: start: 20180206, end: 20180427
  6. ASPIRIN. [Concomitant]
     Active Substance: ASPIRIN
     Indication: CARDIAC FAILURE
     Dosage: 100 MG, QD
     Route: 048
     Dates: start: 20160119
  7. UPTRAVI [Suspect]
     Active Substance: SELEXIPAG
     Dosage: 200 MCG, QD
     Route: 048
     Dates: start: 20180305, end: 20180307
  8. ESIDRIX [Concomitant]
     Active Substance: HYDROCHLOROTHIAZIDE
     Dosage: 1.5 DF, QD
     Route: 048
     Dates: start: 20180313
  9. MOVICOL [Concomitant]
     Active Substance: POLYETHYLENE GLYCOL 3350\POTASSIUM CHLORIDE\SODIUM BICARBONATE\SODIUM CHLORIDE
     Indication: CONSTIPATION
     Dosage: UNK
     Route: 048
     Dates: start: 20160119, end: 20180427
  10. PANTOPRAZOLE [Concomitant]
     Active Substance: PANTOPRAZOLE
     Indication: PROPHYLAXIS
     Dosage: 40 MG, QD
     Route: 048
     Dates: start: 20160212
  11. TORASEMIDE [Concomitant]
     Active Substance: TORSEMIDE
     Indication: CARDIAC FAILURE
     Dosage: UNK
     Route: 048
     Dates: start: 20160119
  12. VITAMIN B [Concomitant]
     Active Substance: VITAMIN B
     Indication: VITAMIN B COMPLEX DEFICIENCY
     Dosage: UNK
     Route: 048
     Dates: start: 20180306, end: 20180606
  13. TRACLEER [Suspect]
     Active Substance: BOSENTAN
     Dosage: 125 MG, TID
     Route: 048
     Dates: start: 20180427, end: 201901
  14. SILDENAFIL. [Concomitant]
     Active Substance: SILDENAFIL
     Indication: PULMONARY ARTERIAL HYPERTENSION
     Dosage: 40 MG, TID
     Route: 048
     Dates: start: 20150101, end: 20180305
  15. INSULIN HUMAN [Concomitant]
     Active Substance: INSULIN HUMAN
     Indication: TYPE 2 DIABETES MELLITUS
     Dosage: UNK
     Route: 058
     Dates: start: 20140101
  16. ESIDRIX [Concomitant]
     Active Substance: HYDROCHLOROTHIAZIDE
     Indication: CARDIAC FAILURE
     Dosage: UNK
     Route: 048
     Dates: start: 20160119, end: 20180206
  17. POTASSIUM CHLORIDE. [Concomitant]
     Active Substance: POTASSIUM CHLORIDE
     Indication: CARDIAC FAILURE
     Dosage: UNK
     Route: 048
     Dates: start: 20160119
  18. KALINOR RETARD P [Concomitant]
     Active Substance: POTASSIUM CHLORIDE
     Indication: HYPOKALAEMIA
     Dosage: 1800 MG, TID
     Route: 048
     Dates: start: 20180305
  19. UPTRAVI [Suspect]
     Active Substance: SELEXIPAG
     Indication: PULMONARY ARTERIAL HYPERTENSION
     Dosage: 400 MCG, QD
     Route: 048
     Dates: start: 20180214, end: 20180228
  20. VIGANTOLETTEN [Concomitant]
     Active Substance: CHOLECALCIFEROL
     Indication: CARDIAC FAILURE
     Dosage: UNK
     Route: 048
     Dates: start: 20180206, end: 20180427
  21. RENVELA [Concomitant]
     Active Substance: SEVELAMER CARBONATE
     Indication: CHRONIC KIDNEY DISEASE
     Dosage: 2.4 G, BID
     Route: 048
     Dates: start: 20160119
  22. SPIRONOLACTONE. [Concomitant]
     Active Substance: SPIRONOLACTONE
     Indication: CARDIAC FAILURE
     Dosage: 100 MG, QD
     Route: 048
     Dates: start: 20160119
  23. TORASEMIDE [Concomitant]
     Active Substance: TORSEMIDE
     Dosage: 150 MG, QD
     Dates: start: 20180313
  24. CHOLECALCIFEROL [Concomitant]
     Active Substance: CHOLECALCIFEROL
     Indication: VITAMIN D DEFICIENCY
     Dosage: UNK
     Route: 048
     Dates: start: 20180306, end: 20180427

REACTIONS (49)
  - Septic shock [Fatal]
  - Multiple organ dysfunction syndrome [Fatal]
  - Pulmonary sepsis [Unknown]
  - Respiratory failure [Unknown]
  - Mouth haemorrhage [Unknown]
  - Tachycardia [Unknown]
  - Hypervolaemia [Unknown]
  - Gamma-glutamyltransferase increased [Unknown]
  - Microcytic anaemia [Unknown]
  - Cardioversion [Unknown]
  - Hepatic congestion [Unknown]
  - Weight increased [Unknown]
  - Haemodynamic instability [Unknown]
  - Dehydration [Recovered/Resolved]
  - Atrial fibrillation [Unknown]
  - Rash [Recovered/Resolved]
  - Respiratory tract infection bacterial [Not Recovered/Not Resolved]
  - Nausea [Recovered/Resolved]
  - Headache [Recovered/Resolved]
  - Lipase increased [Unknown]
  - Pulseless electrical activity [Recovered/Resolved with Sequelae]
  - Haemoglobin decreased [Unknown]
  - Lactic acidosis [Not Recovered/Not Resolved]
  - Right ventricular failure [Unknown]
  - Pulmonary pain [Recovered/Resolved]
  - Pulmonary artery thrombosis [Recovered/Resolved]
  - Alanine aminotransferase increased [Unknown]
  - Red blood cell count increased [Unknown]
  - Hypotension [Unknown]
  - Pharyngeal haemorrhage [Unknown]
  - General physical condition decreased [Unknown]
  - Dyspnoea exertional [Unknown]
  - Procedural hypotension [Recovered/Resolved with Sequelae]
  - Back pain [Recovered/Resolved]
  - Oedema peripheral [Not Recovered/Not Resolved]
  - Blood creatine phosphokinase increased [Unknown]
  - Aspartate aminotransferase increased [Unknown]
  - Cardiogenic shock [Fatal]
  - Dialysis [Unknown]
  - Pain in jaw [Recovered/Resolved]
  - Ventilation perfusion mismatch [Recovered/Resolved]
  - White blood cell count increased [Not Recovered/Not Resolved]
  - C-reactive protein increased [Not Recovered/Not Resolved]
  - Blood chloride decreased [Recovered/Resolved]
  - Hyponatraemia [Recovered/Resolved]
  - Hypokalaemia [Recovered/Resolved]
  - Toothache [Recovered/Resolved]
  - Tongue blistering [Recovered/Resolved]
  - Lung infiltration [Not Recovered/Not Resolved]

NARRATIVE: CASE EVENT DATE: 20180227
